FAERS Safety Report 7313547-5 (Version None)
Quarter: 2011Q1

REPORT INFORMATION
  Report Type: 
  Country: None (occurrence: None)
  Receive Date: 20110215
  Receipt Date: 20110215
  Transmission Date: 20110831
  Serious: No
  Sender: FDA-Public Use
  Company Number: None

PATIENT
  Age: 7 Day
  Sex: Female
  Weight: 43.0917 kg

DRUGS (1)
  1. NAMENDA [Suspect]
     Indication: MIGRAINE
     Dosage: 7MG MORNING DAILY PO
     Route: 048
     Dates: start: 20110208, end: 20110214

REACTIONS (11)
  - HEADACHE [None]
  - VISION BLURRED [None]
  - INSOMNIA [None]
  - GAIT DISTURBANCE [None]
  - NAUSEA [None]
  - DIARRHOEA [None]
  - CHEST PAIN [None]
  - MENTAL DISORDER [None]
  - DIZZINESS [None]
  - CONFUSIONAL STATE [None]
  - DECREASED APPETITE [None]
